FAERS Safety Report 4610769-9 (Version None)
Quarter: 2005Q1

REPORT INFORMATION
  Report Type: 
  Country: None (occurrence: None)
  Receive Date: 20050301
  Receipt Date: 20041209
  Transmission Date: 20050727
  Serious: No
  Sender: FDA-Public Use
  Company Number: WAES 0412USA01933

PATIENT
  Age: 67 Year
  Sex: Female

DRUGS (1)
  1. ZETIA [Suspect]
     Dosage: 10MG/PO
     Route: 048

REACTIONS (1)
  - DRUG INEFFECTIVE [None]
